FAERS Safety Report 6048004-X (Version None)
Quarter: 2009Q1

REPORT INFORMATION
  Report Type: 
  Country: None (occurrence: None)
  Receive Date: 20090123
  Receipt Date: 20090116
  Transmission Date: 20090719
  Serious: Yes (Other)
  Sender: FDA-Public Use
  Company Number: US-ASTRAZENECA-2009UW01499

PATIENT
  Age: 42 Year
  Sex: Female

DRUGS (3)
  1. SEROQUEL [Suspect]
     Route: 048
  2. LEXAPRO [Concomitant]
  3. VYVANSE [Concomitant]

REACTIONS (2)
  - GALACTORRHOEA [None]
  - VEIN DISORDER [None]
